FAERS Safety Report 4954839-4 (Version None)
Quarter: 2006Q1

REPORT INFORMATION
  Report Type: 
  Country: None (occurrence: None)
  Receive Date: 20060327
  Receipt Date: 20050801
  Transmission Date: 20060701
  Serious: Yes (Hospitalization, Other)
  Sender: FDA-Public Use
  Company Number: US-MERCK-0508USA00874

PATIENT
  Age: 41 Year
  Sex: Female
  Weight: 91 kg

DRUGS (2)
  1. VIOXX [Suspect]
     Indication: OSTEOARTHRITIS
     Route: 048
     Dates: start: 20010101, end: 20040101
  2. VIOXX [Suspect]
     Indication: PAIN
     Route: 048
     Dates: start: 20010101, end: 20040101

REACTIONS (21)
  - BLOOD GLUCOSE INCREASED [None]
  - BRONCHIAL HYPERACTIVITY [None]
  - CEREBROVASCULAR ACCIDENT [None]
  - CHEST PAIN [None]
  - CORONARY ARTERY DISEASE [None]
  - DEFICIENCY ANAEMIA [None]
  - DIABETES MELLITUS [None]
  - DIABETIC NEUROPATHY [None]
  - DIZZINESS [None]
  - DYSPNOEA [None]
  - EMBOLISM [None]
  - HEADACHE [None]
  - HYPERLIPIDAEMIA [None]
  - HYPERTENSION [None]
  - LIMB DISCOMFORT [None]
  - MIGRAINE [None]
  - MUSCULOSKELETAL DISCOMFORT [None]
  - MYALGIA [None]
  - UTERINE LEIOMYOMA [None]
  - VENTRICULAR EXTRASYSTOLES [None]
  - VIRAL INFECTION [None]
